FAERS Safety Report 10504070 (Version 1)
Quarter: 2014Q4

REPORT INFORMATION
  Report Type: Spontaneous
  Country: US (occurrence: US)
  Receive Date: 20141008
  Receipt Date: 20141008
  Transmission Date: 20150528
  Serious: No
  Sender: FDA-Public Use
  Company Number: US-BEH-2013038176

PATIENT
  Sex: Male
  Weight: 27 kg

DRUGS (12)
  1. PRIVIGEN [Suspect]
     Active Substance: HUMAN IMMUNOGLOBULIN G
     Indication: HYPOGAMMAGLOBULINAEMIA
     Route: 042
  2. PEDIACARE DECONGESTANT [Concomitant]
  3. PRIVIGEN [Suspect]
     Active Substance: HUMAN IMMUNOGLOBULIN G
     Indication: HYPOGAMMAGLOBULINAEMIA
     Route: 042
  4. TENEX [Concomitant]
     Active Substance: GUANFACINE HYDROCHLORIDE
  5. ACETAMINOPHEN. [Concomitant]
     Active Substance: ACETAMINOPHEN
  6. LIDOCAINE/PRILOCAINE [Concomitant]
  7. METAMUCIL [Concomitant]
     Active Substance: PLANTAGO SEED
  8. STOOL SOFTENER [Concomitant]
     Active Substance: DOCUSATE CALCIUM
  9. DIPHENHYDRAMINE [Concomitant]
     Active Substance: DIPHENHYDRAMINE
  10. RISPERDAL [Concomitant]
     Active Substance: RISPERIDONE
  11. EPIPEN [Concomitant]
     Active Substance: EPINEPHRINE
  12. DEXTROSE 5% [Concomitant]
     Active Substance: DEXTROSE

REACTIONS (1)
  - Vomiting [Unknown]
